FAERS Safety Report 25504784 (Version 1)
Quarter: 2025Q3

REPORT INFORMATION
  Report Type: Spontaneous
  Country: EU (occurrence: EU)
  Receive Date: 20250702
  Receipt Date: 20250702
  Transmission Date: 20251021
  Serious: Yes (Death, Other)
  Sender: SANDOZ
  Company Number: EU-EMA-DD-20171213-negievprod-091749

PATIENT
  Age: 30 Year
  Sex: Male

DRUGS (3)
  1. THYMOCYTE IMMUNE GLOBULIN NOS [Suspect]
     Active Substance: THYMOCYTE IMMUNE GLOBULIN NOS
     Indication: Acute lymphocytic leukaemia
     Route: 065
  2. CYCLOPHOSPHAMIDE [Suspect]
     Active Substance: CYCLOPHOSPHAMIDE
     Indication: Acute lymphocytic leukaemia
     Route: 065
  3. FLUDARABINE [Suspect]
     Active Substance: FLUDARABINE PHOSPHATE
     Indication: Acute lymphocytic leukaemia
     Route: 065

REACTIONS (13)
  - Respiratory paralysis [Fatal]
  - Coronavirus infection [Fatal]
  - Graft versus host disease [Unknown]
  - Muscular weakness [Unknown]
  - Loss of consciousness [Unknown]
  - Apathy [Unknown]
  - Coma [Unknown]
  - Catatonia [Unknown]
  - Apnoea [Unknown]
  - Encephalitis [Unknown]
  - BK virus infection [Unknown]
  - Cytomegalovirus infection reactivation [Unknown]
  - Cystitis haemorrhagic [Unknown]
